FAERS Safety Report 4471453-8 (Version None)
Quarter: 2004Q4

REPORT INFORMATION
  Report Type: 
  Country: None (occurrence: None)
  Receive Date: 20041007
  Receipt Date: 20041007
  Transmission Date: 20050328
  Serious: Yes (Hospitalization)
  Sender: FDA-Public Use
  Company Number: None

PATIENT
  Age: 69 Year
  Sex: Female
  Weight: 86 kg

DRUGS (1)
  1. LOVENOX [Suspect]
     Indication: DEEP VEIN THROMBOSIS
     Dosage: 90MG  Q12  SUBQ
     Dates: start: 20040709, end: 20040714

REACTIONS (4)
  - BREAST INJURY [None]
  - CONTUSION [None]
  - HAEMATOMA [None]
  - SKIN NECROSIS [None]
